FAERS Safety Report 9077072 (Version 1)
Quarter: 2013Q1

REPORT INFORMATION
  Report Type: Spontaneous
  Country: CA (occurrence: CA)
  Receive Date: 20130130
  Receipt Date: 20130130
  Transmission Date: 20140127
  Serious: Yes (Disabling)
  Sender: FDA-Public Use
  Company Number: CA-US-EMD SERONO, INC.-7185211

PATIENT
  Sex: Female

DRUGS (2)
  1. REBIF [Suspect]
     Indication: RELAPSING-REMITTING MULTIPLE SCLEROSIS
     Route: 058
     Dates: start: 20030914, end: 20080101
  2. REBIF [Suspect]
     Route: 058
     Dates: start: 20090807

REACTIONS (3)
  - Abasia [Unknown]
  - Neurological examination abnormal [Unknown]
  - Arthralgia [Unknown]
